FAERS Safety Report 9254385 (Version 3)
Quarter: 2014Q3

REPORT INFORMATION
  Report Type: Spontaneous
  Country: US (occurrence: None)
  Receive Date: 20130422
  Receipt Date: 20140813
  Transmission Date: 20150326
  Serious: Yes (Other)
  Sender: FDA-Public Use
  Company Number: JPI-P-031139

PATIENT
  Age: 51 Year
  Sex: Female

DRUGS (1)
  1. XYREM [Suspect]
     Active Substance: SODIUM OXYBATE
     Indication: FIBROMYALGIA
     Dosage: 9GM (4.5 GM, 2 IN 1 D), ORAL?
     Route: 048
     Dates: start: 201008, end: 2010

REACTIONS (7)
  - Cervical vertebral fracture [None]
  - Blood pressure decreased [None]
  - Fall [None]
  - Neck injury [None]
  - Muscle tightness [None]
  - Pain [None]
  - Off label use [None]

NARRATIVE: CASE EVENT DATE: 20130321
